FAERS Safety Report 18191613 (Version 8)
Quarter: 2021Q4

REPORT INFORMATION
  Report Type: Report from Study
  Country: US (occurrence: US)
  Receive Date: 20200824
  Receipt Date: 20211020
  Transmission Date: 20220303
  Serious: Yes (Hospitalization)
  Sender: FDA-Public Use
  Company Number: US-EXELIXIS-XL18420031807

PATIENT
  Age: 92 Year
  Sex: Female
  Weight: 56.4 kg

DRUGS (20)
  1. CABOZANTINIB [Suspect]
     Active Substance: CABOZANTINIB
     Indication: Transitional cell carcinoma
     Dosage: 40 MG, QD
     Route: 048
     Dates: start: 20200721, end: 20200802
  2. ATEZOLIZUMAB [Suspect]
     Active Substance: ATEZOLIZUMAB
     Indication: Transitional cell carcinoma
     Dosage: 1200 MG, Q3WEEKS
     Route: 042
     Dates: start: 20200721, end: 20200928
  3. ATEZOLIZUMAB [Suspect]
     Active Substance: ATEZOLIZUMAB
     Dosage: 1200 MG, Q3WEEKS
     Route: 042
     Dates: start: 20200820, end: 20201003
  4. ACETAMINOPHEN [Concomitant]
     Active Substance: ACETAMINOPHEN
  5. ATENOLOL [Concomitant]
     Active Substance: ATENOLOL
  6. FERROUS SULFATE [Concomitant]
     Active Substance: FERROUS SULFATE
  7. GLUCOSAMINE [Concomitant]
     Active Substance: GLUCOSAMINE
  8. Ibandronate monosodium monohydrate [Concomitant]
  9. LOPERAMIDE [Concomitant]
     Active Substance: LOPERAMIDE
  10. .ALPHA.-TOCOPHEROL [Concomitant]
     Active Substance: .ALPHA.-TOCOPHEROL
  11. CHOLECALCIFEROL [Concomitant]
     Active Substance: CHOLECALCIFEROL
  12. MELATONIN [Concomitant]
     Active Substance: MELATONIN
  13. GINKGO [Concomitant]
     Active Substance: GINKGO
  14. BIOTIN [Concomitant]
     Active Substance: BIOTIN
  15. FISH OIL [Concomitant]
     Active Substance: FISH OIL
  16. LUTEIN [Concomitant]
     Active Substance: LUTEIN
  17. VITAMIN C [Concomitant]
     Active Substance: ASCORBIC ACID
  18. DOCUSATE SODIUM [Concomitant]
     Active Substance: DOCUSATE SODIUM
  19. Calcium carbonate;Calcium citrate;Colecalciferol [Concomitant]
  20. FOLIC ACID [Concomitant]
     Active Substance: FOLIC ACID

REACTIONS (3)
  - Fistula of small intestine [Recovered/Resolved with Sequelae]
  - Hyponatraemia [Recovered/Resolved]
  - Dehydration [Recovered/Resolved]

NARRATIVE: CASE EVENT DATE: 20200729
